FAERS Safety Report 5772459-9 (Version None)
Quarter: 2008Q2

REPORT INFORMATION
  Report Type: 
  Country: None (occurrence: None)
  Receive Date: 20080613
  Receipt Date: 20080604
  Transmission Date: 20081010
  Serious: Yes (Other)
  Sender: FDA-Public Use
  Company Number: US-BRISTOL-MYERS SQUIBB COMPANY-14216972

PATIENT

DRUGS (1)
  1. HYDROXYUREA [Suspect]
     Indication: SICKLE CELL ANAEMIA
     Route: 064

REACTIONS (6)
  - ATTENTION DEFICIT/HYPERACTIVITY DISORDER [None]
  - HYPOGLYCAEMIA [None]
  - MENTAL RETARDATION [None]
  - NEONATAL ASPIRATION [None]
  - PREGNANCY [None]
  - SMALL FOR DATES BABY [None]
